FAERS Safety Report 6390683-1 (Version None)
Quarter: 2009Q4

REPORT INFORMATION
  Report Type: 
  Country: None (occurrence: None)
  Receive Date: 20091006
  Receipt Date: 20090928
  Transmission Date: 20100525
  Serious: Yes (Other)
  Sender: FDA-Public Use
  Company Number: DE-TEVA-210829ISR

PATIENT
  Sex: Male

DRUGS (3)
  1. DICLOFENAC SODIUM [Suspect]
     Indication: PAIN
     Route: 061
     Dates: start: 20090101
  2. RAMIPRIL [Concomitant]
  3. HEMODILUTING AGENT (NOS) [Concomitant]

REACTIONS (1)
  - BLINDNESS [None]
